FAERS Safety Report 6311776-0 (Version None)
Quarter: 2009Q3

REPORT INFORMATION
  Report Type: 
  Country: None (occurrence: None)
  Receive Date: 20090813
  Receipt Date: 20090813
  Transmission Date: 20100115
  Serious: Yes (Other)
  Sender: FDA-Public Use
  Company Number: None

PATIENT
  Age: 51 Year
  Sex: Female
  Weight: 112.9457 kg

DRUGS (2)
  1. TOPAMAX [Suspect]
     Indication: FIBROMYALGIA
     Dosage: 100 MG 1 BID
     Dates: start: 20090626
  2. TOPAMAX [Suspect]
     Indication: OSTEOARTHRITIS
     Dosage: 100 MG 1 BID
     Dates: start: 20090626

REACTIONS (2)
  - HEADACHE [None]
  - PRODUCT SUBSTITUTION ISSUE [None]
